FAERS Safety Report 5618962-3 (Version None)
Quarter: 2008Q1

REPORT INFORMATION
  Report Type: 
  Country: None (occurrence: None)
  Receive Date: 20080207
  Receipt Date: 20080123
  Transmission Date: 20080703
  Serious: Yes (Hospitalization)
  Sender: FDA-Public Use
  Company Number: DE-GENENTECH-253818

PATIENT
  Sex: Male
  Weight: 61 kg

DRUGS (4)
  1. AVASTIN [Suspect]
     Indication: RECTAL CANCER
     Dosage: UNK, UNK
     Dates: end: 20071208
  2. FOLINIC ACID [Suspect]
     Indication: RECTAL CANCER
     Dosage: UNK, UNK
     Dates: end: 20071208
  3. FLUOROURACIL [Suspect]
     Indication: RECTAL CANCER
     Dosage: UNK, UNK
     Dates: end: 20071208
  4. IRINOTECAN [Suspect]
     Indication: RECTAL CANCER
     Dosage: UNK, UNK
     Dates: end: 20071208

REACTIONS (2)
  - ILEAL PERFORATION [None]
  - METASTASES TO LIVER [None]
